FAERS Safety Report 5628871-1 (Version None)
Quarter: 2008Q1

REPORT INFORMATION
  Report Type: 
  Country: None (occurrence: None)
  Receive Date: 20080215
  Receipt Date: 20080212
  Transmission Date: 20080703
  Serious: Yes (Hospitalization)
  Sender: FDA-Public Use
  Company Number: US-GENENTECH-252227

PATIENT
  Sex: Male
  Weight: 116.1 kg

DRUGS (13)
  1. BLINDED ERLOTINIB [Suspect]
     Indication: NON-SMALL CELL LUNG CANCER
     Dosage: 150 MG, QD
     Route: 048
     Dates: start: 20071009
  2. BLINDED PLACEBO [Suspect]
     Indication: NON-SMALL CELL LUNG CANCER
     Dosage: 150 MG, QD
     Route: 048
     Dates: start: 20071009
  3. BEVACIZUMAB [Suspect]
     Indication: NON-SMALL CELL LUNG CANCER
     Dosage: 1825 MG, Q3W
     Route: 042
     Dates: start: 20070717
  4. CARBOPLATIN [Suspect]
     Indication: LUNG CANCER METASTATIC
     Dosage: UNK, Q3W
     Route: 042
     Dates: start: 20070717
  5. GEMCITABINE HCL [Suspect]
     Indication: LUNG CANCER METASTATIC
     Dosage: UNK, Q3W
     Route: 042
     Dates: start: 20070717
  6. COMBIVENT [Concomitant]
     Indication: DRUG USE FOR UNKNOWN INDICATION
     Dosage: 2 PUFF, PRN
  7. HYDROCHLOROTHIAZIDE [Concomitant]
     Indication: DRUG USE FOR UNKNOWN INDICATION
     Dosage: 12.5 MG, QD
  8. LAMISIL [Concomitant]
     Indication: DRUG USE FOR UNKNOWN INDICATION
     Dosage: 250 MG, QD
  9. LIPITOR [Concomitant]
     Indication: DRUG USE FOR UNKNOWN INDICATION
     Dosage: 20 MG, QD
  10. LISINOPRIL [Concomitant]
     Indication: DRUG USE FOR UNKNOWN INDICATION
     Dosage: 40 MG, QD
  11. NASACORT [Concomitant]
     Indication: DRUG USE FOR UNKNOWN INDICATION
     Dosage: UNK, PRN
  12. PHENERGAN EXPECTORANT W/ CODEINE [Concomitant]
     Indication: COUGH
  13. VICODIN [Concomitant]
     Indication: PAIN
     Dosage: UNK, PRN

REACTIONS (3)
  - HYPOTENSION [None]
  - PYREXIA [None]
  - SUBCUTANEOUS ABSCESS [None]
